FAERS Safety Report 18517414 (Version 1)
Quarter: 2020Q4

REPORT INFORMATION
  Report Type: Spontaneous
  Country: US (occurrence: US)
  Receive Date: 20201118
  Receipt Date: 20201118
  Transmission Date: 20210114
  Serious: Yes (Life-Threatening, Hospitalization)
  Sender: FDA-Public Use
  Company Number: None

PATIENT
  Age: 64 Year
  Sex: Female

DRUGS (3)
  1. ASPIRIN. [Suspect]
     Active Substance: ASPIRIN
  2. CILOSTAZOL. [Suspect]
     Active Substance: CILOSTAZOL
  3. CLOPIDOGREL [Suspect]
     Active Substance: CLOPIDOGREL BISULFATE

REACTIONS (4)
  - Hypertension [None]
  - Dyspnoea [None]
  - Haemorrhagic stroke [None]
  - Swelling [None]

NARRATIVE: CASE EVENT DATE: 20200624
